FAERS Safety Report 8013218-6 (Version None)
Quarter: 2011Q4

REPORT INFORMATION
  Report Type: 
  Country: None (occurrence: None)
  Receive Date: 20111229
  Receipt Date: 20111229
  Transmission Date: 20120403
  Serious: No
  Sender: FDA-Public Use
  Company Number: None

PATIENT
  Age: 41 Year
  Sex: Male
  Weight: 53.977 kg

DRUGS (1)
  1. ZOMETA [Suspect]
     Indication: HYPERCALCAEMIA OF MALIGNANCY
     Dosage: 4 MG
     Route: 042

REACTIONS (5)
  - TOOTH INFECTION [None]
  - SWELLING [None]
  - OSTEONECROSIS OF JAW [None]
  - TOOTH EXTRACTION [None]
  - PAIN IN JAW [None]
